FAERS Safety Report 9668789 (Version 4)
Quarter: 2014Q1

REPORT INFORMATION
  Report Type: Report from Study
  Country: AT (occurrence: AT)
  Receive Date: 20131105
  Receipt Date: 20140221
  Transmission Date: 20141002
  Serious: Yes (Hospitalization)
  Sender: FDA-Public Use
  Company Number: AT-BAYER-2012-056717

PATIENT
  Age: 49 Year
  Sex: Male
  Weight: 66 kg

DRUGS (3)
  1. SORAFENIB (RAF KINASE INHIBITOR) [Suspect]
     Indication: HEPATOCELLULAR CARCINOMA
     Dosage: 400 MG, BID
     Dates: start: 20120210
  2. CARVEDILOL [Concomitant]
     Indication: VARICOSE VEIN
     Dosage: UNK
     Dates: start: 201201
  3. HYDROMORPHONE [Concomitant]
     Indication: PAIN
     Dosage: DAILY DOSE 8 MG
     Dates: start: 201201

REACTIONS (5)
  - Abscess drainage [Recovered/Resolved]
  - Diarrhoea [Recovering/Resolving]
  - Craniocerebral injury [Recovered/Resolved]
  - Fall [Recovered/Resolved]
  - Hepatic encephalopathy [Recovered/Resolved]
